FAERS Safety Report 5677363-2 (Version None)
Quarter: 2008Q1

REPORT INFORMATION
  Report Type: 
  Country: None (occurrence: None)
  Receive Date: 20080320
  Receipt Date: 20080320
  Transmission Date: 20080703
  Serious: Yes (Other)
  Sender: FDA-Public Use
  Company Number: None

PATIENT
  Age: 57 Year
  Sex: Female
  Weight: 104.3273 kg

DRUGS (1)
  1. LOVENOX [Suspect]
     Indication: DEEP VEIN THROMBOSIS
     Dosage: 2 INJECTIONS TWICE DAILY SQ
     Route: 058
     Dates: start: 19941216, end: 19941223

REACTIONS (4)
  - FAECAL INCONTINENCE [None]
  - FAECES DISCOLOURED [None]
  - INJECTION SITE REACTION [None]
  - VOMITING [None]
